FAERS Safety Report 14458480 (Version 1)
Quarter: 2018Q1

REPORT INFORMATION
  Report Type: Spontaneous
  Country: US (occurrence: US)
  Receive Date: 20180129
  Receipt Date: 20180129
  Transmission Date: 20180509
  Serious: No
  Sender: FDA-Public Use
  Company Number: None

PATIENT
  Age: 68 Year
  Sex: Female

DRUGS (1)
  1. EXEMESTANE TAB 25MG [Suspect]
     Active Substance: EXEMESTANE

REACTIONS (2)
  - Gingival recession [None]
  - Alopecia [None]

NARRATIVE: CASE EVENT DATE: 20180128
